FAERS Safety Report 17184230 (Version 1)
Quarter: 2019Q4

REPORT INFORMATION
  Report Type: Spontaneous
  Country: US (occurrence: US)
  Receive Date: 20191219
  Receipt Date: 20191219
  Transmission Date: 20200122
  Serious: Yes (Hospitalization)
  Sender: FDA-Public Use
  Company Number: None

PATIENT
  Age: 64 Year
  Sex: Male

DRUGS (6)
  1. ALLEGRA ALLERGY 180 MG TABLET [Concomitant]
     Dates: start: 20190827
  2. CAPECITABINE. [Suspect]
     Active Substance: CAPECITABINE
     Indication: RECTOSIGMOID CANCER
     Dosage: ?          OTHER FREQUENCY:BID 2W ON 1W OFF;?
     Route: 048
     Dates: start: 20190128
  3. TRESIBA FLEX INJECTOR 100 UNIT [Concomitant]
     Dates: start: 20190614
  4. METFORMIN 1000 MG TABLET [Concomitant]
     Dates: start: 20190306
  5. TRADJENTA [Concomitant]
     Active Substance: LINAGLIPTIN
     Dates: start: 20190614
  6. NOVOLOG FLEX PEN INJECTION [Concomitant]
     Dates: start: 20190614

REACTIONS (1)
  - Hospitalisation [None]

NARRATIVE: CASE EVENT DATE: 20191219
